FAERS Safety Report 17781490 (Version 1)
Quarter: 2020Q2

REPORT INFORMATION
  Report Type: Spontaneous
  Country: FR (occurrence: FR)
  Receive Date: 20200513
  Receipt Date: 20200513
  Transmission Date: 20200714
  Serious: Yes (Hospitalization)
  Sender: FDA-Public Use
  Company Number: FR-MYLANLABS-2020M1046038

PATIENT
  Age: 56 Year
  Sex: Female

DRUGS (6)
  1. HYDROCHLOROTHIAZIDE. [Suspect]
     Active Substance: HYDROCHLOROTHIAZIDE
     Indication: PRODUCT USED FOR UNKNOWN INDICATION
     Dosage: UNK
     Route: 048
  2. BISOPROLOL [Suspect]
     Active Substance: BISOPROLOL
     Indication: PRODUCT USED FOR UNKNOWN INDICATION
     Dosage: UNK
     Route: 048
  3. HEXASPRAY [Suspect]
     Active Substance: BICLOTYMOL
     Indication: RHINITIS
     Dosage: UNK
     Route: 049
     Dates: start: 20190521, end: 20190523
  4. STREPSILS                          /01541501/ [Suspect]
     Active Substance: AMYLMETACRESOL\DICHLOROBENZYL ALCOHOL\LIDOCAINE
     Indication: RHINITIS
     Dosage: UNK
     Route: 048
     Dates: start: 20190521, end: 20190523
  5. EFFERALGAN [Suspect]
     Active Substance: ACETAMINOPHEN
     Indication: RHINITIS
     Dosage: UNK
     Route: 048
     Dates: start: 20190521, end: 20190523
  6. ZELITREX [Suspect]
     Active Substance: VALACYCLOVIR HYDROCHLORIDE
     Indication: HERPES SIMPLEX
     Dosage: 1 DOSAGE FORM, QD
     Route: 048
     Dates: start: 2016

REACTIONS (1)
  - Acute generalised exanthematous pustulosis [Recovered/Resolved]

NARRATIVE: CASE EVENT DATE: 20190526
